FAERS Safety Report 10185941 (Version 2)
Quarter: 2014Q2

REPORT INFORMATION
  Report Type: Report from Study
  Country: MX (occurrence: MX)
  Receive Date: 20140521
  Receipt Date: 20140620
  Transmission Date: 20141212
  Serious: Yes (Death, Life-Threatening, Hospitalization, Other)
  Sender: FDA-Public Use
  Company Number: PHHY2014MX059979

PATIENT
  Age: 61 Year
  Sex: Female

DRUGS (8)
  1. CICLOSPORIN [Suspect]
     Indication: RENAL TRANSPLANT
     Dosage: 100 MG, 1 DAY
     Route: 048
     Dates: start: 20070115, end: 20131201
  2. MYCOPHENOLATE MOFETIL [Suspect]
     Indication: RENAL TRANSPLANT
     Dosage: UNK UKN, UNK
     Dates: start: 20070115, end: 20131201
  3. PREDNISONE [Suspect]
     Indication: RENAL TRANSPLANT
     Dosage: UNK UKN, UNK
     Dates: start: 20070117, end: 20131201
  4. RANITIDINE [Concomitant]
     Dosage: UNK UKN, UNK
     Dates: start: 20070117
  5. CALCIUM CARBONATE [Concomitant]
     Dosage: UNK UKN, UNK
     Dates: start: 20070117
  6. INSULIN [Concomitant]
     Dosage: UNK UKN, UNK
     Dates: start: 20070119
  7. METFORMIN [Concomitant]
     Dosage: UNK UKN, UNK
     Dates: start: 20070119
  8. LOSARTAN [Concomitant]
     Dosage: UNK UKN, UNK
     Dates: start: 20070119

REACTIONS (22)
  - Ileus [Fatal]
  - Abdominal distension [Fatal]
  - Intestinal dilatation [Fatal]
  - Intestinal obstruction [Fatal]
  - Cerebral infarction [Fatal]
  - Renal failure acute [Fatal]
  - Hypertension [Fatal]
  - Septic shock [Fatal]
  - Abdominal sepsis [Fatal]
  - Demyelination [Unknown]
  - Progressive multifocal leukoencephalopathy [Not Recovered/Not Resolved]
  - Psychotic behaviour [Unknown]
  - Dementia [Unknown]
  - Depression [Unknown]
  - Respiratory failure [Unknown]
  - Personality disorder [Unknown]
  - Aggression [Unknown]
  - Anxiety [Unknown]
  - Haemodynamic instability [Unknown]
  - Mental impairment [Unknown]
  - Dyskinesia [Unknown]
  - Disorientation [Unknown]
